FAERS Safety Report 18925246 (Version 1)
Quarter: 2021Q1

REPORT INFORMATION
  Report Type: Not Available
  Country: US (occurrence: US)
  Receive Date: 20210222
  Receipt Date: 20210222
  Transmission Date: 20210420
  Serious: Yes (Hospitalization)
  Sender: FDA-Public Use
  Company Number: US-NEUROCRINE BIOSCIENCES INC.-2021NBI00656

PATIENT
  Age: 64 Year
  Sex: Female

DRUGS (9)
  1. MOBIC [Concomitant]
     Active Substance: MELOXICAM
  2. BENZTROPINE. [Concomitant]
     Active Substance: BENZTROPINE
  3. LAMICTAL [Concomitant]
     Active Substance: LAMOTRIGINE
  4. PAROXETINE. [Concomitant]
     Active Substance: PAROXETINE
  5. SYNTHROID [Concomitant]
     Active Substance: LEVOTHYROXINE SODIUM
  6. KEFLEX [Concomitant]
     Active Substance: CEPHALEXIN
  7. CYMBALTA [Concomitant]
     Active Substance: DULOXETINE HYDROCHLORIDE
  8. INGREZZA [Suspect]
     Active Substance: VALBENAZINE
     Indication: TARDIVE DYSKINESIA
     Route: 048
     Dates: start: 20201118
  9. ROPINIROLE. [Concomitant]
     Active Substance: ROPINIROLE

REACTIONS (2)
  - Fall [Recovered/Resolved]
  - Device dislocation [Unknown]
